FAERS Safety Report 5586016-0 (Version None)
Quarter: 2008Q1

REPORT INFORMATION
  Report Type: 
  Country: None (occurrence: None)
  Receive Date: 20080104
  Receipt Date: 20071114
  Transmission Date: 20080703
  Serious: No
  Sender: FDA-Public Use
  Company Number: 2006JP005110

PATIENT
  Age: 11 Year
  Sex: Female
  Weight: 32 kg

DRUGS (1)
  1. PROTOPIC [Suspect]
     Indication: DERMATITIS ATOPIC
     Dosage: 0.03 %, TOPICAL; 0.03 %, TOPICAL
     Route: 061
     Dates: start: 20060308, end: 20061216

REACTIONS (3)
  - APPLICATION SITE FOLLICULITIS [None]
  - IMPETIGO [None]
  - SKIN PAPILLOMA [None]
